FAERS Safety Report 11631789 (Version 1)
Quarter: 2015Q4

REPORT INFORMATION
  Report Type: Spontaneous
  Country: US (occurrence: None)
  Receive Date: 20151013
  Receipt Date: 20151013
  Transmission Date: 20160304
  Serious: Yes (Other)
  Sender: FDA-Public Use
  Company Number: None

PATIENT
  Age: 46 Year
  Sex: Female
  Weight: 72.58 kg

DRUGS (1)
  1. CARBAMAZEPINE ER [Suspect]
     Active Substance: CARBAMAZEPINE
     Route: 048
     Dates: start: 201503, end: 201508

REACTIONS (4)
  - Haematochezia [None]
  - Rash pruritic [None]
  - Hallucination, visual [None]
  - Visual impairment [None]

NARRATIVE: CASE EVENT DATE: 20150727
